FAERS Safety Report 17769688 (Version 1)
Quarter: 2020Q2

REPORT INFORMATION
  Report Type: Spontaneous
  Country: US (occurrence: US)
  Receive Date: 20200511
  Receipt Date: 20200511
  Transmission Date: 20200714
  Serious: No
  Sender: FDA-Public Use
  Company Number: None

PATIENT
  Age: 32 Year
  Sex: Male

DRUGS (1)
  1. BUPRENORPHINE - NALOXONE SL FILMS [Suspect]
     Active Substance: BUPRENORPHINE\NALOXONE
     Indication: DRUG DEPENDENCE
     Dosage: ?          OTHER FREQUENCY:16MG BUP/DAILY;?
     Route: 060

REACTIONS (2)
  - Drug ineffective [None]
  - Product substitution issue [None]
